FAERS Safety Report 24905730 (Version 1)
Quarter: 2025Q1

REPORT INFORMATION
  Report Type: Spontaneous
  Country: DE (occurrence: DE)
  Receive Date: 20250130
  Receipt Date: 20250130
  Transmission Date: 20250408
  Serious: Yes (Hospitalization, Other)
  Sender: FRESENIUS KABI
  Company Number: None

PATIENT
  Age: 71 Year
  Sex: Male
  Weight: 84 kg

DRUGS (11)
  1. PIPERACILLIN SODIUM\TAZOBACTAM SODIUM [Suspect]
     Active Substance: PIPERACILLIN SODIUM\TAZOBACTAM SODIUM
     Indication: Bacterial infection
     Dosage: 1-1-1-1?FOA-POWDER FOR SOLUTION FOR INFUSION
     Route: 042
     Dates: start: 20250114, end: 20250121
  2. PIPERACILLIN SODIUM\TAZOBACTAM SODIUM [Suspect]
     Active Substance: PIPERACILLIN SODIUM\TAZOBACTAM SODIUM
     Indication: Post procedural infection
  3. VANCOMYCIN HYDROCHLORIDE [Suspect]
     Active Substance: VANCOMYCIN HYDROCHLORIDE
     Indication: Bacterial infection
     Dosage: 1-0-1?FOA-POWDER FOR CONCENTRATE FOR SOLUTION FOR INFUSION
     Route: 042
     Dates: start: 20250118, end: 20250121
  4. VANCOMYCIN HYDROCHLORIDE [Suspect]
     Active Substance: VANCOMYCIN HYDROCHLORIDE
     Indication: Post procedural infection
  5. Enoxaparin Ledraxen 4.000 IE (40 mg)/0,4 m [Concomitant]
     Indication: Thrombosis prophylaxis
     Dosage: 0-0-1?FOA-SOLUTION FOR INJECTION
     Route: 058
     Dates: start: 20250118
  6. Novamine Sulfone Clearing Stone 500 mg [Concomitant]
     Indication: Pain
     Dosage: 2-2-2-2?FOA-TABLET
     Route: 048
     Dates: start: 20250114
  7. ramilich 5 mg [Concomitant]
     Indication: Hypertension
     Dosage: 1-0-0?FOA-TABLET
     Route: 048
  8. Torasemid HEXAL 10 mg Tabletten [Concomitant]
     Indication: Oedema
     Dosage: 1-0-0?FOA-TABLET
     Route: 048
     Dates: start: 20250114, end: 20250120
  9. Metformin HEXAL 850mg [Concomitant]
     Indication: Type 2 diabetes mellitus
     Dosage: 1-0-1?FOA-TABLET
     Route: 048
  10. Macrogol HEXAL plus Electrolyte Powder for Oral Solution [Concomitant]
     Indication: Gastrointestinal motility disorder
     Dosage: 1-0-1?FOA-POWDER FOR ORAL SOLUTION
     Route: 048
     Dates: start: 20250114
  11. Pantoprazole TAD 40 mg enteric-resistant tablets [Concomitant]
     Indication: Prophylaxis against gastrointestinal ulcer
     Dosage: 1-0-0?FOA-GASTRO-RESISTANT TABLET
     Route: 048
     Dates: start: 20250115

REACTIONS (4)
  - Blood creatinine increased [Recovering/Resolving]
  - Glomerular filtration rate decreased [Recovering/Resolving]
  - Acute kidney injury [Recovering/Resolving]
  - Drug interaction [Unknown]

NARRATIVE: CASE EVENT DATE: 20250118
